FAERS Safety Report 4363823-3 (Version None)
Quarter: 2004Q2

REPORT INFORMATION
  Report Type: 
  Country: None (occurrence: None)
  Receive Date: 20040521
  Receipt Date: 20040408
  Transmission Date: 20050107
  Serious: Yes (Death, Life-Threatening)
  Sender: FDA-Public Use
  Company Number: THYM-10081

PATIENT
  Age: 54 Year
  Sex: Female
  Weight: 61.2 kg

DRUGS (12)
  1. THYMOGLOBULINE [Suspect]
     Indication: PROPHYLAXIS AGAINST TRANSPLANT REJECTION
     Dosage: 153 MG
     Dates: start: 20040102, end: 20040104
  2. TACROLIMUS [Concomitant]
  3. CANCIDAS [Concomitant]
  4. TEQUIN [Concomitant]
  5. VALCYTE [Concomitant]
  6. VALTREX [Concomitant]
  7. PENTAM [Concomitant]
  8. COREG [Concomitant]
  9. PROTONIX [Concomitant]
  10. AMIODARONE HCL [Concomitant]
  11. LASIX [Concomitant]
  12. FLUDARABINE PHOSPHATE [Concomitant]

REACTIONS (12)
  - BONE MARROW TRANSPLANT [None]
  - CARDIAC FAILURE CONGESTIVE [None]
  - FUNGAL INFECTION [None]
  - HAEMATOCRIT DECREASED [None]
  - HAEMOGLOBIN DECREASED [None]
  - OPPORTUNISTIC INFECTION [None]
  - PLATELET COUNT DECREASED [None]
  - PNEUMONIA [None]
  - POST PROCEDURAL COMPLICATION [None]
  - RED BLOOD CELL COUNT DECREASED [None]
  - RENAL FAILURE [None]
  - WHITE BLOOD CELL COUNT INCREASED [None]
